FAERS Safety Report 25395462 (Version 1)
Quarter: 2025Q2

REPORT INFORMATION
  Report Type: Spontaneous
  Country: US (occurrence: US)
  Receive Date: 20250604
  Receipt Date: 20250604
  Transmission Date: 20250717
  Serious: Yes (Other)
  Sender: NOVARTIS
  Company Number: US-002147023-NVSC2025US086756

PATIENT

DRUGS (1)
  1. KESIMPTA [Suspect]
     Active Substance: OFATUMUMAB
     Indication: Product used for unknown indication
     Route: 065

REACTIONS (35)
  - Mast cell activation syndrome [Unknown]
  - Multiple sclerosis relapse [Unknown]
  - Epilepsy [Unknown]
  - Thrombosis [Unknown]
  - Syncope [Unknown]
  - Inflammation [Unknown]
  - Sinusitis [Unknown]
  - Food allergy [Unknown]
  - Arthralgia [Unknown]
  - Device issue [Unknown]
  - Migraine [Unknown]
  - Pain [Unknown]
  - Chills [Unknown]
  - Fatigue [Unknown]
  - COVID-19 [Unknown]
  - Arthralgia [Unknown]
  - Fear of injection [Unknown]
  - Injection site mass [Unknown]
  - Muscle spasms [Unknown]
  - Paraesthesia [Unknown]
  - Dyspnoea [Unknown]
  - Influenza like illness [Unknown]
  - Anxiety [Unknown]
  - Urinary tract infection [Unknown]
  - Gastrointestinal disorder [Unknown]
  - Contusion [Unknown]
  - Insomnia [Unknown]
  - Asthenia [Unknown]
  - Trichomoniasis [Unknown]
  - Micturition urgency [Unknown]
  - Nausea [Unknown]
  - Anorectal discomfort [Unknown]
  - Anal pruritus [Unknown]
  - Vulvovaginal pruritus [Unknown]
  - Folliculitis genital [Unknown]
